FAERS Safety Report 5216586-3 (Version None)
Quarter: 2007Q1

REPORT INFORMATION
  Report Type: 
  Country: None (occurrence: None)
  Receive Date: 20070118
  Receipt Date: 20070108
  Transmission Date: 20070707
  Serious: Yes (Hospitalization)
  Sender: FDA-Public Use
  Company Number: 2007-00070

PATIENT
  Age: 33 Year
  Sex: Female

DRUGS (1)
  1. METFORMIN HYDROCHLORIDE [Suspect]
     Indication: WEIGHT DECREASED
     Dosage: 850 MG, DAILY

REACTIONS (2)
  - SELF-MEDICATION [None]
  - VASCULITIS [None]
